FAERS Safety Report 15814223 (Version 2)
Quarter: 2019Q1

REPORT INFORMATION
  Report Type: Spontaneous
  Country: IT (occurrence: IT)
  Receive Date: 20190111
  Receipt Date: 20190228
  Transmission Date: 20190417
  Serious: Yes (Other)
  Sender: FDA-Public Use
  Company Number: PHHY2019IT004501

PATIENT

DRUGS (1)
  1. CILODEX OTIC (ALC) [Suspect]
     Active Substance: CIPROFLOXACIN\DEXAMETHASONE
     Indication: OTITIS EXTERNA
     Dosage: 3 GTT, QD
     Route: 065
     Dates: start: 20181108, end: 20181110

REACTIONS (2)
  - Angioedema [Recovered/Resolved]
  - Urticaria [Recovered/Resolved]

NARRATIVE: CASE EVENT DATE: 20181109
